FAERS Safety Report 19245469 (Version 1)
Quarter: 2021Q2

REPORT INFORMATION
  Report Type: Spontaneous
  Country: JP (occurrence: JP)
  Receive Date: 20210512
  Receipt Date: 20210512
  Transmission Date: 20210717
  Serious: Yes (Other)
  Sender: FDA-Public Use
  Company Number: JP-TEVA-2021-JP-002210J

PATIENT
  Age: 79 Year
  Sex: Male
  Weight: 68 kg

DRUGS (1)
  1. ALPROSTADIL INJECTION 10G ^TAKEDA TEVA^ [Suspect]
     Active Substance: ALPROSTADIL
     Indication: BLUE TOE SYNDROME
     Dosage: 10 MICROGRAM DAILY;
     Route: 065

REACTIONS (2)
  - Product use in unapproved indication [Unknown]
  - Hypersensitivity vasculitis [Recovered/Resolved]

NARRATIVE: CASE EVENT DATE: 20210402
